FAERS Safety Report 9102458 (Version 1)
Quarter: 2013Q1

REPORT INFORMATION
  Report Type: Report from Study
  Country: ES (occurrence: ES)
  Receive Date: 20130218
  Receipt Date: 20130218
  Transmission Date: 20140127
  Serious: Yes (Hospitalization)
  Sender: FDA-Public Use
  Company Number: ES-ROCHE-1191233

PATIENT
  Age: 63 Year
  Sex: Male

DRUGS (7)
  1. MYCOPHENOLATE MOFETIL [Suspect]
     Indication: LIVER TRANSPLANT
     Route: 048
     Dates: start: 201103
  2. EVEROLIMUS [Interacting]
     Indication: LIVER TRANSPLANT
     Route: 048
     Dates: start: 200902, end: 20110412
  3. ATORVASTATIN [Concomitant]
     Indication: HYPERLIPIDAEMIA
     Route: 048
     Dates: start: 200807
  4. DUROGESIC MATRIX [Concomitant]
     Route: 062
     Dates: start: 200901
  5. HYDRAPRES [Concomitant]
     Route: 048
     Dates: start: 200902
  6. SEGURIL [Concomitant]
     Route: 048
     Dates: start: 200606
  7. CICLOSPORIN [Concomitant]

REACTIONS (2)
  - Enteritis [Recovered/Resolved]
  - Drug interaction [Unknown]
